FAERS Safety Report 8103274-9 (Version None)
Quarter: 2012Q1

REPORT INFORMATION
  Report Type: 
  Country: None (occurrence: None)
  Receive Date: 20120201
  Receipt Date: 20120118
  Transmission Date: 20120608
  Serious: Yes (Hospitalization)
  Sender: FDA-Public Use
  Company Number: US-MYLANLABS-2011S1000185

PATIENT
  Age: 11 Year
  Sex: Male

DRUGS (45)
  1. MORPHINE [Suspect]
     Route: 041
     Dates: start: 20100621, end: 20100709
  2. STREPTOCOCCUS FAECALIS [Suspect]
     Route: 048
     Dates: start: 20100711, end: 20100718
  3. ACETAMINOPHEN [Suspect]
     Indication: PYREXIA
     Route: 048
     Dates: start: 20100627, end: 20100716
  4. HEPARIN SODIUM [Suspect]
     Route: 041
     Dates: start: 20100617
  5. DEXAMETHASONE [Suspect]
     Route: 042
     Dates: start: 20100617, end: 20100622
  6. HYDROXYZINE HCL [Suspect]
     Route: 041
     Dates: start: 20100709, end: 20100709
  7. FAMOTIDINE [Suspect]
     Route: 041
     Dates: start: 20100617, end: 20100626
  8. CEFTRIAXONE [Suspect]
     Indication: INFECTION
     Route: 041
     Dates: start: 20100630, end: 20100707
  9. FUROSEMIDE [Suspect]
     Route: 048
     Dates: start: 20100626, end: 20100706
  10. CALCIUM GLUCONATE [Suspect]
     Route: 041
     Dates: start: 20100621, end: 20100621
  11. FLURBIPROFEN [Suspect]
     Route: 041
     Dates: start: 20100709, end: 20100709
  12. ACETAMINOPHEN [Suspect]
     Route: 054
     Dates: start: 20100630, end: 20100716
  13. DIAZEPAM [Suspect]
     Route: 048
     Dates: start: 20100622, end: 20100701
  14. DIAZEPAM [Suspect]
     Route: 048
     Dates: start: 20100702, end: 20100722
  15. PHENOBARBITAL TAB [Suspect]
     Route: 048
     Dates: start: 20100622, end: 20100709
  16. AMPICILLIN [Suspect]
     Route: 041
     Dates: start: 20100715, end: 20100716
  17. RISPERIDONE [Suspect]
     Route: 048
     Dates: start: 20100702, end: 20100714
  18. MIDAZOLAM [Suspect]
     Route: 041
     Dates: start: 20100621, end: 20100621
  19. FAMOTIDINE [Suspect]
     Route: 048
     Dates: start: 20100626, end: 20100715
  20. BIOFERMIN T [Suspect]
     Route: 048
     Dates: start: 20100711, end: 20100718
  21. LACTOBACILLUS CASEI [Suspect]
     Route: 048
     Dates: start: 20100702, end: 20100709
  22. OMEPRAZOLE [Suspect]
     Route: 041
     Dates: start: 20100716, end: 20100721
  23. ATROPINE SULFATE [Suspect]
     Route: 041
     Dates: start: 20100617, end: 20100622
  24. EPINEPHRINE [Suspect]
     Route: 041
     Dates: start: 20100621, end: 20100621
  25. NITRAZEPAM [Suspect]
     Route: 041
     Dates: start: 20100617, end: 20100709
  26. CLINDAMYCIN PHOSPHATE [Suspect]
     Route: 042
     Dates: start: 20100708, end: 20100710
  27. SPIRONOLACTONE [Suspect]
     Route: 048
     Dates: start: 20100626, end: 20100706
  28. SODIUM PICOSULFATE [Suspect]
     Route: 048
     Dates: start: 20100620, end: 20100620
  29. GLYCEROL 2.6% [Suspect]
     Route: 041
     Dates: start: 20100617, end: 20100618
  30. HYALURONATE SODIUM [Suspect]
     Route: 047
     Dates: start: 20100723, end: 20100821
  31. ETIZOLAM [Suspect]
     Dosage: UNIT CONT:1
     Route: 048
     Dates: start: 20100701, end: 20100701
  32. HEPARIN SODIUM [Suspect]
     Route: 041
     Dates: start: 20100808, end: 20100812
  33. FENTANYL CITRATE [Suspect]
     Route: 041
     Dates: start: 20100621, end: 20100708
  34. OFLOXACIN [Suspect]
     Route: 047
     Dates: start: 20100728, end: 20100729
  35. GLYCEROL 2.6% [Suspect]
     Indication: CONSTIPATION
     Route: 054
     Dates: start: 20100621
  36. LANSOPRAZOLE [Suspect]
     Route: 048
     Dates: start: 20100628, end: 20100728
  37. TRICLOFOS SODIUM [Suspect]
     Route: 048
     Dates: start: 20100628, end: 20100705
  38. NICARDIPINE HYDROCHLORIDE [Suspect]
     Route: 041
     Dates: start: 20100622, end: 20100624
  39. ROCURONIUM BROMIDE [Suspect]
     Route: 041
     Dates: start: 20100617, end: 20100706
  40. LIDOCAINE [Suspect]
     Route: 041
     Dates: start: 20100621, end: 20100709
  41. ULTIVA [Suspect]
     Route: 042
     Dates: start: 20100621, end: 20100708
  42. CEFAZOLIN [Suspect]
     Route: 041
     Dates: start: 20100622, end: 20100624
  43. PIPERACILLIN SODIUM [Suspect]
     Route: 041
     Dates: start: 20100715, end: 20100716
  44. DEXMEDETOMIDINE HYDROCHLORIDE [Suspect]
     Route: 041
     Dates: start: 20100704, end: 20100705
  45. DEXPANTHENOL [Suspect]
     Route: 041
     Dates: start: 20100604, end: 20100705

REACTIONS (1)
  - DRUG RASH WITH EOSINOPHILIA AND SYSTEMIC SYMPTOMS [None]
